FAERS Safety Report 16950887 (Version 1)
Quarter: 2019Q4

REPORT INFORMATION
  Report Type: Spontaneous
  Country: CA (occurrence: CA)
  Receive Date: 20191023
  Receipt Date: 20191023
  Transmission Date: 20200122
  Serious: Yes (Hospitalization)
  Sender: FDA-Public Use
  Company Number: CA-PFIZER INC-2019453606

PATIENT
  Sex: Female
  Weight: 84 kg

DRUGS (17)
  1. DILANTIN [Suspect]
     Active Substance: PHENYTOIN
     Indication: SEIZURE
     Dosage: 100 MG, 2X/DAY
     Route: 048
  2. GRANULOCYTE COLONY STIMULATING FACTOR [Concomitant]
     Active Substance: GRANULOCYTE COLONY-STIMULATING FACTOR NOS
     Dosage: UNK
  3. ACETAMINOPHEN. [Concomitant]
     Active Substance: ACETAMINOPHEN
     Dosage: UNK
  4. MORPHINE SULFATE. [Concomitant]
     Active Substance: MORPHINE SULFATE
     Dosage: UNK
  5. PANTOPRAZOLE [Concomitant]
     Active Substance: PANTOPRAZOLE
     Dosage: UNK
  6. SENNOSIDES. [Concomitant]
     Active Substance: SENNOSIDES
     Dosage: UNK
  7. DIMENHYDRINATE. [Concomitant]
     Active Substance: DIMENHYDRINATE
     Dosage: UNK
  8. DOCUSATE SODIUM. [Concomitant]
     Active Substance: DOCUSATE SODIUM
     Dosage: UNK
  9. IBUPROFEN. [Concomitant]
     Active Substance: IBUPROFEN
     Dosage: UNK
  10. HEPARIN SODIUM. [Concomitant]
     Active Substance: HEPARIN SODIUM
     Dosage: UNK
  11. IMIPENEM AND CILASTATIN [Concomitant]
     Active Substance: CILASTATIN SODIUM\IMIPENEM
     Dosage: UNK
  12. AMITRIPTYLINE [Concomitant]
     Active Substance: AMITRIPTYLINE
     Dosage: UNK
  13. CITALOPRAM [Concomitant]
     Active Substance: CITALOPRAM HYDROBROMIDE
     Dosage: UNK
  14. NYSTATIN. [Concomitant]
     Active Substance: NYSTATIN
     Dosage: UNK
  15. OXAZEPAM. [Concomitant]
     Active Substance: OXAZEPAM
     Dosage: UNK
  16. SODIUM CHLORIDE. [Concomitant]
     Active Substance: SODIUM CHLORIDE
     Dosage: UNK
  17. PHENYTOIN. [Concomitant]
     Active Substance: PHENYTOIN
     Dosage: UNK

REACTIONS (3)
  - Neutropenia [Not Recovered/Not Resolved]
  - Pyrexia [Not Recovered/Not Resolved]
  - Gingival pain [Not Recovered/Not Resolved]
